FAERS Safety Report 16839982 (Version 2)
Quarter: 2019Q4

REPORT INFORMATION
  Report Type: Report from Study
  Country: CA (occurrence: CA)
  Receive Date: 20190923
  Receipt Date: 20191002
  Transmission Date: 20200122
  Serious: Yes (Other)
  Sender: FDA-Public Use
  Company Number: CA-PFIZER INC-2019403368

PATIENT
  Age: 58 Year
  Sex: Female

DRUGS (13)
  1. COSENTYX [Suspect]
     Active Substance: SECUKINUMAB
     Dosage: 300.0 MG, WEEKLY
     Route: 058
  2. COSENTYX [Suspect]
     Active Substance: SECUKINUMAB
     Dosage: 300.0 MG, MONTHLY
     Route: 058
  3. COSENTYX [Suspect]
     Active Substance: SECUKINUMAB
     Dosage: 300.0 MG, WEEKLY
     Route: 058
  4. SINGULAIR [Concomitant]
     Active Substance: MONTELUKAST SODIUM
     Indication: ASTHMA
     Dosage: UNK
     Route: 048
  5. COSENTYX [Suspect]
     Active Substance: SECUKINUMAB
     Dosage: 300.0 MG, MONTHLY
     Route: 058
  6. ENBREL [Concomitant]
     Active Substance: ETANERCEPT
     Dosage: UNK
     Route: 058
  7. HUMIRA [Concomitant]
     Active Substance: ADALIMUMAB
     Dosage: UNK
     Route: 058
  8. METHOTREXATE SODIUM. [Suspect]
     Active Substance: METHOTREXATE SODIUM
     Dosage: UNK
     Route: 058
  9. COSENTYX [Suspect]
     Active Substance: SECUKINUMAB
     Dosage: UNK
     Route: 058
  10. COSENTYX [Suspect]
     Active Substance: SECUKINUMAB
     Indication: PSORIASIS
     Dosage: UNK
     Route: 058
  11. COSENTYX [Suspect]
     Active Substance: SECUKINUMAB
     Indication: PSORIASIS
     Dosage: 300.0 MG, WEEKLY
     Route: 058
  12. BETAMETHASONE DIPROPIONATE/CALCIPOTRIOL [Concomitant]
     Dosage: UNK
     Route: 061
  13. HYDROCHLOROTHIAZIDE. [Concomitant]
     Active Substance: HYDROCHLOROTHIAZIDE
     Indication: ASTHMA
     Dosage: UNK
     Route: 048

REACTIONS (11)
  - Off label use [Unknown]
  - Product use issue [Unknown]
  - Skin fissures [Not Recovered/Not Resolved]
  - Skin haemorrhage [Not Recovered/Not Resolved]
  - Drug ineffective [Not Recovered/Not Resolved]
  - Arthritis [Not Recovered/Not Resolved]
  - Pain in extremity [Not Recovered/Not Resolved]
  - Kidney infection [Not Recovered/Not Resolved]
  - Back pain [Not Recovered/Not Resolved]
  - Dry skin [Not Recovered/Not Resolved]
  - Psoriasis [Not Recovered/Not Resolved]
